FAERS Safety Report 6231409-1 (Version None)
Quarter: 2009Q2

REPORT INFORMATION
  Report Type: 
  Country: None (occurrence: None)
  Receive Date: 20090616
  Receipt Date: 20090610
  Transmission Date: 20091009
  Serious: Yes (Other)
  Sender: FDA-Public Use
  Company Number: GB-WYE-G03829609

PATIENT
  Sex: Male
  Weight: 25 kg

DRUGS (1)
  1. REFACTO [Suspect]
     Route: 042

REACTIONS (1)
  - DRUG INEFFECTIVE [None]
